FAERS Safety Report 5522176-5 (Version None)
Quarter: 2007Q4

REPORT INFORMATION
  Report Type: 
  Country: None (occurrence: None)
  Receive Date: 20071120
  Receipt Date: 20071113
  Transmission Date: 20080405
  Serious: Yes (Hospitalization)
  Sender: FDA-Public Use
  Company Number: A0662515A

PATIENT
  Age: 87 Year
  Sex: Male
  Weight: 74.1 kg

DRUGS (3)
  1. COREG [Suspect]
     Indication: CARDIAC FAILURE CONGESTIVE
     Dosage: 6.25MG TWICE PER DAY
     Route: 048
  2. POTASSIUM CHLORIDE [Concomitant]
     Dosage: 10MEQ PER DAY
     Route: 048
  3. LASIX [Concomitant]
     Dosage: 40MG PER DAY
     Route: 048

REACTIONS (8)
  - DIARRHOEA [None]
  - DYSPNOEA [None]
  - INSOMNIA [None]
  - OEDEMA [None]
  - OEDEMA PERIPHERAL [None]
  - ORTHOPNOEA [None]
  - PLEURAL EFFUSION [None]
  - POLLAKIURIA [None]
